FAERS Safety Report 7561240-6 (Version None)
Quarter: 2011Q2

REPORT INFORMATION
  Report Type: 
  Country: None (occurrence: None)
  Receive Date: 20110621
  Receipt Date: 20100525
  Transmission Date: 20111010
  Serious: No
  Sender: FDA-Public Use
  Company Number: US-ASTRAZENECA-2010SE24105

PATIENT
  Sex: Female

DRUGS (2)
  1. PULMICORT FLEXHALER [Suspect]
     Dosage: 180 MCG, DAILY
     Route: 055
  2. PULMICORT FLEXHALER [Suspect]
     Indication: ASTHMA
     Route: 055
     Dates: start: 20100201

REACTIONS (4)
  - PSYCHOMOTOR HYPERACTIVITY [None]
  - EXPIRED DRUG ADMINISTERED [None]
  - DYSPNOEA [None]
  - ASTHMA [None]
